FAERS Safety Report 9097529 (Version 1)
Quarter: 2013Q1

REPORT INFORMATION
  Report Type: Report from Study
  Country: US (occurrence: US)
  Receive Date: 20130212
  Receipt Date: 20130212
  Transmission Date: 20140127
  Serious: Yes (Hospitalization, Other)
  Sender: FDA-Public Use
  Company Number: US-ROCHE-1188678

PATIENT
  Age: 47 Year
  Sex: Male
  Weight: 77.18 kg

DRUGS (3)
  1. AVASTIN [Suspect]
     Indication: ANAPLASTIC ASTROCYTOMA
     Route: 042
     Dates: start: 20110101
  2. TEMODAR [Concomitant]
     Indication: ANAPLASTIC ASTROCYTOMA
     Route: 048
     Dates: start: 20110101, end: 20120701
  3. CEENU [Concomitant]
     Indication: ANAPLASTIC ASTROCYTOMA
     Route: 048
     Dates: start: 20120701

REACTIONS (4)
  - Influenza [Recovering/Resolving]
  - Neoplasm [Unknown]
  - Dysgeusia [Unknown]
  - Decreased appetite [Unknown]
